FAERS Safety Report 17563676 (Version 5)
Quarter: 2020Q4

REPORT INFORMATION
  Report Type: Other
  Country: CA (occurrence: CA)
  Receive Date: 20200320
  Receipt Date: 20201120
  Transmission Date: 20210113
  Serious: Yes (Other)
  Sender: FDA-Public Use
  Company Number: CA-ROCHE-2311787

PATIENT
  Age: 60 Year
  Sex: Female

DRUGS (10)
  1. OCREVUS [Suspect]
     Active Substance: OCRELIZUMAB
     Dosage: DAY 0, 14 THEN 600 MG Q6M
     Route: 042
     Dates: start: 20190416
  2. ESTROGEL [Concomitant]
     Active Substance: ESTRADIOL
  3. OCREVUS [Suspect]
     Active Substance: OCRELIZUMAB
     Route: 042
     Dates: start: 20200601
  4. TYLENOL [Concomitant]
     Active Substance: ACETAMINOPHEN
  5. ACETAMINOPHENE [Concomitant]
     Active Substance: ACETAMINOPHEN
     Indication: PREMEDICATION
     Route: 048
  6. METHYLPREDNISOLONE. [Concomitant]
     Active Substance: METHYLPREDNISOLONE
     Indication: PREMEDICATION
     Route: 042
  7. XALACOM [Concomitant]
     Active Substance: LATANOPROST\TIMOLOL MALEATE
  8. OCREVUS [Suspect]
     Active Substance: OCRELIZUMAB
     Indication: RELAPSING-REMITTING MULTIPLE SCLEROSIS
     Dosage: 300 MG AT DAY 0 AND 14, THEN 600 MG EVERY 6 MONTH
     Route: 042
     Dates: start: 20190402
  9. TOVIAZ [Concomitant]
     Active Substance: FESOTERODINE FUMARATE
  10. CELEXA [Concomitant]
     Active Substance: CITALOPRAM HYDROBROMIDE

REACTIONS (26)
  - Paraesthesia [Recovered/Resolved]
  - Cough [Recovered/Resolved]
  - Fatigue [Not Recovered/Not Resolved]
  - Peripheral swelling [Recovered/Resolved]
  - Tremor [Not Recovered/Not Resolved]
  - Discomfort [Unknown]
  - Infusion related reaction [Recovering/Resolving]
  - Pain in extremity [Recovered/Resolved]
  - Pruritus [Recovered/Resolved]
  - Wheezing [Recovered/Resolved]
  - General physical health deterioration [Not Recovered/Not Resolved]
  - Hypoaesthesia [Recovered/Resolved]
  - Palpitations [Recovered/Resolved]
  - Back pain [Recovered/Resolved]
  - Eye pain [Recovered/Resolved]
  - Dry mouth [Recovered/Resolved]
  - Tuberculosis [Recovered/Resolved]
  - Vomiting [Recovered/Resolved]
  - Nausea [Recovered/Resolved]
  - Skin hypopigmentation [Recovered/Resolved]
  - Eyelid ptosis [Recovered/Resolved]
  - Lung disorder [Recovered/Resolved]
  - Dry eye [Recovered/Resolved]
  - Infusion related reaction [Recovered/Resolved]
  - Eructation [Recovered/Resolved]
  - Gait disturbance [Recovered/Resolved]

NARRATIVE: CASE EVENT DATE: 20190402
